FAERS Safety Report 20573387 (Version 1)
Quarter: 2022Q1

REPORT INFORMATION
  Report Type: Spontaneous
  Country: CN (occurrence: None)
  Receive Date: 20220309
  Receipt Date: 20220309
  Transmission Date: 20220423
  Serious: Yes (Hospitalization)
  Sender: FDA-Public Use
  Company Number: CN-ROCHE-3038271

PATIENT
  Age: 70 Year
  Sex: Female
  Weight: 48.5 kg

DRUGS (1)
  1. XELODA [Suspect]
     Active Substance: CAPECITABINE
     Indication: Adenocarcinoma of colon
     Route: 048
     Dates: start: 20220104

REACTIONS (2)
  - Skin fissures [Recovering/Resolving]
  - Pigmentation disorder [Recovering/Resolving]

NARRATIVE: CASE EVENT DATE: 20220110
